FAERS Safety Report 21139074 (Version 1)
Quarter: 2022Q3

REPORT INFORMATION
  Report Type: Report from Study
  Country: US (occurrence: US)
  Receive Date: 20220727
  Receipt Date: 20220727
  Transmission Date: 20221027
  Serious: Yes (Other)
  Sender: FDA-Public Use
  Company Number: US-JAZZ-2022-US-000676

PATIENT
  Sex: Female

DRUGS (9)
  1. XYREM [Suspect]
     Active Substance: SODIUM OXYBATE
     Indication: Narcolepsy
     Dosage: 2.25 GRAM, BID
     Route: 048
     Dates: start: 202110
  2. XYREM [Suspect]
     Active Substance: SODIUM OXYBATE
     Indication: Cataplexy
  3. XYREM [Suspect]
     Active Substance: SODIUM OXYBATE
     Indication: Somnolence
  4. XELJANZ [Suspect]
     Active Substance: TOFACITINIB CITRATE
     Indication: Product used for unknown indication
     Dosage: 1 DOSAGE FORM, QHS
     Route: 048
  5. ALBUTEROL [Concomitant]
     Active Substance: ALBUTEROL
     Dosage: UNK, QID
  6. DEXTROAMPHETAMINE [Concomitant]
     Active Substance: DEXTROAMPHETAMINE
     Dosage: 1 DOSAGE FORM, DAILY
     Route: 048
  7. ARMODAFINIL [Concomitant]
     Active Substance: ARMODAFINIL
     Route: 048
  8. SUMATRIPTAN [Concomitant]
     Active Substance: SUMATRIPTAN
  9. TRIMETHOPRIM [Concomitant]
     Active Substance: TRIMETHOPRIM
     Dosage: UNK, QD
     Route: 048

REACTIONS (13)
  - Surgery [Unknown]
  - Fibromyalgia [Unknown]
  - Immune system disorder [Unknown]
  - Chest pain [Unknown]
  - Weight decreased [Unknown]
  - COVID-19 [Recovered/Resolved]
  - Post-acute COVID-19 syndrome [Unknown]
  - Constipation [Unknown]
  - Pre-existing condition improved [Unknown]
  - Wrong technique in product usage process [Unknown]
  - Product dose omission issue [Unknown]
  - Therapeutic response unexpected [Unknown]
  - Product administration interrupted [Unknown]
